FAERS Safety Report 19849968 (Version 1)
Quarter: 2021Q3

REPORT INFORMATION
  Report Type: Spontaneous
  Country: EG (occurrence: EG)
  Receive Date: 20210917
  Receipt Date: 20210917
  Transmission Date: 20211014
  Serious: Yes (Other)
  Sender: FDA-Public Use
  Company Number: EG-ELI_LILLY_AND_COMPANY-EG202109004279

PATIENT
  Age: 57 Year
  Sex: Female

DRUGS (2)
  1. GEMZAR [Suspect]
     Active Substance: GEMCITABINE HYDROCHLORIDE
     Indication: BREAST CANCER
     Dosage: 1500 MG, UNKNOWN
     Route: 042
     Dates: start: 20210710
  2. CARBOTINOL [Suspect]
     Active Substance: CARBOPLATIN
     Indication: BREAST CANCER
     Dosage: 500 MG, UNKNOWN
     Route: 042
     Dates: start: 20210710

REACTIONS (5)
  - Bone pain [Recovering/Resolving]
  - Asphyxia [Recovering/Resolving]
  - Blood pressure decreased [Recovering/Resolving]
  - Burning sensation [Recovering/Resolving]
  - Gastritis [Recovering/Resolving]
